FAERS Safety Report 15963779 (Version 2)
Quarter: 2019Q1

REPORT INFORMATION
  Report Type: Spontaneous
  Country: SK (occurrence: SK)
  Receive Date: 20190214
  Receipt Date: 20190304
  Transmission Date: 20190417
  Serious: Yes (Death, Hospitalization)
  Sender: FDA-Public Use
  Company Number: SK-MYLANLABS-2019M1012720

PATIENT
  Age: 52 Year
  Sex: Male

DRUGS (5)
  1. TRIMEPRANOL                        /00323401/ [Concomitant]
     Indication: HYPERTENSION
     Dosage: UNK
     Route: 065
  2. CIPROFLOXACIN. [Suspect]
     Active Substance: CIPROFLOXACIN
     Indication: VOMITING
     Dosage: UNK
  3. CIPROFLOXACIN. [Suspect]
     Active Substance: CIPROFLOXACIN
     Indication: DIARRHOEA
  4. TRIMEPRANOL                        /00323401/ [Concomitant]
     Indication: VOMITING
  5. TRIMEPRANOL                        /00323401/ [Concomitant]
     Indication: DIARRHOEA

REACTIONS (10)
  - Tachycardia [Fatal]
  - Hyperhidrosis [Fatal]
  - Tachypnoea [Fatal]
  - Cyanosis [Fatal]
  - Nasopharyngitis [Fatal]
  - Loss of consciousness [Fatal]
  - Septic shock [Fatal]
  - Necrotising colitis [Fatal]
  - Sopor [Fatal]
  - Clostridium difficile infection [Fatal]
